FAERS Safety Report 24440686 (Version 2)
Quarter: 2024Q4

REPORT INFORMATION
  Report Type: Report from Study
  Country: US (occurrence: US)
  Receive Date: 20241016
  Receipt Date: 20241017
  Transmission Date: 20250115
  Serious: No
  Sender: ROCHE
  Company Number: US-ROCHE-2752536

PATIENT
  Age: 28 Year
  Sex: Male

DRUGS (3)
  1. HEMLIBRA [Suspect]
     Active Substance: EMICIZUMAB-KXWH
     Indication: Factor VIII deficiency
     Dosage: INJECT 555 MG (THREE 150 MG VIALS AND ONE 105 MG VIAL)
     Route: 058
  2. HEMLIBRA [Suspect]
     Active Substance: EMICIZUMAB-KXWH
     Indication: Haemophilia
     Dosage: INJECT 492MG (2.1ML FROM 3X105MG VIALS + 1.18ML FROM 3X60MG VIALS)?SUBCUTANEOUSLY EVERY 4 WEEK(S)
     Route: 058
  3. HEMLIBRA [Suspect]
     Active Substance: EMICIZUMAB-KXWH
     Dosage: INJECT 492MG (2.1ML FROM 3X105MG VIALS + 1.18ML FROM 3X60MG VIALS)?SUBCUTANEOUSLY EVERY 4 WEEK(S)
     Route: 058

REACTIONS (2)
  - Pain [Unknown]
  - Arthralgia [Unknown]
